FAERS Safety Report 22158936 (Version 2)
Quarter: 2023Q2

REPORT INFORMATION
  Report Type: Spontaneous
  Country: PL (occurrence: PL)
  Receive Date: 20230331
  Receipt Date: 20230529
  Transmission Date: 20230722
  Serious: Yes (Life-Threatening, Congenital Anomaly, Other)
  Sender: FDA-Public Use
  Company Number: PL-NOVOPROD-1042097

PATIENT
  Age: 1 Month
  Sex: Female
  Weight: 2.25 kg

DRUGS (3)
  1. INSULIN DETEMIR [Suspect]
     Active Substance: INSULIN DETEMIR
     Indication: Type 1 diabetes mellitus
     Dosage: UNK
     Route: 015
     Dates: end: 20230212
  2. NOVORAPID [Suspect]
     Active Substance: INSULIN ASPART
     Indication: Type 1 diabetes mellitus
     Dosage: 5-6 UNITS BEFORE BREAKFAST, 6 UNITS - BEFORE LUNCH, 5 UNITS - BEFORE DINNER
     Route: 015
     Dates: end: 20230212
  3. INSULIN NOS [Suspect]
     Active Substance: INSULIN NOS
     Indication: Type 1 diabetes mellitus
     Dosage: AT 7 AM - 4 UNITS, AT 10:30 PM - 19 UNITS
     Route: 015
     Dates: end: 20230212

REACTIONS (8)
  - Premature baby [Recovered/Resolved]
  - Foetal growth restriction [Unknown]
  - Congenital foot malformation [Unknown]
  - Congenital hand malformation [Unknown]
  - Cleft palate [Unknown]
  - Low birth weight baby [Unknown]
  - Foetal exposure during pregnancy [Recovered/Resolved]
  - Exposure via breast milk [Unknown]

NARRATIVE: CASE EVENT DATE: 20230212
